FAERS Safety Report 9637975 (Version 1)
Quarter: 2013Q4

REPORT INFORMATION
  Report Type: Spontaneous
  Country: IN (occurrence: IN)
  Receive Date: 20131022
  Receipt Date: 20131022
  Transmission Date: 20140711
  Serious: Yes (Other)
  Sender: FDA-Public Use
  Company Number: IN-ASTRAZENECA-2012SE58082

PATIENT
  Age: 40 Year
  Sex: Female

DRUGS (2)
  1. ISOBARIC BUPIVACAINE [Suspect]
     Indication: ANALGESIC THERAPY
     Route: 037
  2. SUFENTANIL [Suspect]
     Indication: ANALGESIC THERAPY
     Route: 037

REACTIONS (4)
  - Aphasia [Recovered/Resolved]
  - Mood altered [Recovered/Resolved]
  - Salivary hypersecretion [Recovered/Resolved]
  - Dysphagia [Recovered/Resolved]
